FAERS Safety Report 16271547 (Version 5)
Quarter: 2019Q2

REPORT INFORMATION
  Report Type: Report from Study
  Country: AU (occurrence: AU)
  Receive Date: 20190506
  Receipt Date: 20190604
  Transmission Date: 20190711
  Serious: Yes (Hospitalization, Other)
  Sender: FDA-Public Use
  Company Number: AU-ROCHE-1838358

PATIENT
  Age: 84 Year
  Sex: Male
  Weight: 96 kg

DRUGS (92)
  1. OBINUTUZUMAB. [Suspect]
     Active Substance: OBINUTUZUMAB
     Dosage: CYCLE 1 DAY 16 TOTAL VLOLUME (250 ML) INFUSION RATE 100 UNITS MG/HR.
     Route: 065
     Dates: start: 20161013, end: 20161013
  2. OBINUTUZUMAB. [Suspect]
     Active Substance: OBINUTUZUMAB
     Dosage: CYCLE 1 DAY 9 (TOTAL VOLUME OF 250 ML) INFUSION RATE OF 100 UNITS MG/HR.
     Route: 065
     Dates: start: 20161006, end: 20161007
  3. OBINUTUZUMAB. [Suspect]
     Active Substance: OBINUTUZUMAB
     Dosage: CYCLE 4 DAY 1 (TOTAL VOLUME 250 ML) INFUSION RATE :100UNITS MG/HR.
     Route: 065
     Dates: start: 20161222, end: 20161222
  4. ZANUBRUTINIB [Suspect]
     Active Substance: ZANUBRUTINIB
     Dosage: CYCLE 1 NUMBER OF CAPSULES 2, DRUG INTRUPPTED.
     Route: 048
     Dates: start: 20161001, end: 20161001
  5. DEXAMETHASONE. [Concomitant]
     Active Substance: DEXAMETHASONE
     Indication: PROPHYLAXIS
     Route: 042
     Dates: start: 20160929, end: 20160929
  6. LORATADINE. [Concomitant]
     Active Substance: LORATADINE
     Route: 048
     Dates: start: 20161006, end: 20161006
  7. SPIRIVA [Concomitant]
     Active Substance: TIOTROPIUM BROMIDE MONOHYDRATE
     Route: 048
     Dates: start: 2002
  8. ROXITHROMYCIN [Concomitant]
     Active Substance: ROXITHROMYCIN
     Indication: GASTROOESOPHAGEAL REFLUX DISEASE
     Route: 048
     Dates: start: 20161208, end: 20161212
  9. AUGMENTIN [Concomitant]
     Active Substance: AMOXICILLIN\CLAVULANATE POTASSIUM
     Indication: RENAL COLIC
     Route: 048
     Dates: start: 20180514, end: 20180518
  10. POTASSIUM CHLORIDE. [Concomitant]
     Active Substance: POTASSIUM CHLORIDE
     Route: 048
     Dates: start: 20180815
  11. OBINUTUZUMAB. [Suspect]
     Active Substance: OBINUTUZUMAB
     Dosage: CYCLE 5 DAY 1 (TOTAL VOLUME 250 ML) INFUSION RATE :100UNITS MG/HR.
     Route: 065
     Dates: start: 20170119, end: 20170119
  12. ZANUBRUTINIB [Suspect]
     Active Substance: ZANUBRUTINIB
     Dosage: CYCLE 3 NUMBER OF CAPSULES 4
     Route: 048
     Dates: start: 20161124, end: 20161221
  13. ZANUBRUTINIB [Suspect]
     Active Substance: ZANUBRUTINIB
     Dosage: CYCLE 4 NUMBER OF CAPSULES 4
     Route: 048
     Dates: start: 20161222, end: 20170118
  14. ZANUBRUTINIB [Suspect]
     Active Substance: ZANUBRUTINIB
     Dosage: CYCLE 13 NUMBER OF CAPSULES 4?CYCLE 1
     Route: 048
     Dates: start: 20161002, end: 20161026
  15. ZANUBRUTINIB [Suspect]
     Active Substance: ZANUBRUTINIB
     Dosage: CYCLE 18 NUMBER OF CAPSULES 2
     Route: 048
     Dates: start: 20180509, end: 20180703
  16. DEXAMETHASONE. [Concomitant]
     Active Substance: DEXAMETHASONE
     Route: 042
     Dates: start: 20160930, end: 20160930
  17. DEXAMETHASONE. [Concomitant]
     Active Substance: DEXAMETHASONE
     Route: 042
     Dates: start: 20161027, end: 20161027
  18. DEXAMETHASONE. [Concomitant]
     Active Substance: DEXAMETHASONE
     Route: 042
     Dates: start: 20161013, end: 20161013
  19. PARACETAMOL [Concomitant]
     Active Substance: ACETAMINOPHEN
     Route: 048
     Dates: start: 20161027, end: 20161027
  20. SOMAC [Concomitant]
     Active Substance: PANTOPRAZOLE SODIUM
     Route: 048
     Dates: start: 2011
  21. RIVAROXABAN [Concomitant]
     Active Substance: RIVAROXABAN
     Route: 048
     Dates: start: 2000
  22. SERETIDE [Concomitant]
     Active Substance: FLUTICASONE PROPIONATE\SALMETEROL XINAFOATE
     Dosage: 500/50 PUFF
     Route: 065
     Dates: start: 2002
  23. AUGMENTIN DUO [Concomitant]
     Active Substance: AMOXICILLIN\CLAVULANATE POTASSIUM
     Indication: GASTROOESOPHAGEAL REFLUX DISEASE
     Dosage: 875/125 MG
     Route: 048
     Dates: start: 20161203, end: 20161212
  24. INDOCID [INDOMETACIN] [Concomitant]
     Active Substance: INDOMETHACIN
     Indication: NEPHROLITHIASIS
  25. OBINUTUZUMAB. [Suspect]
     Active Substance: OBINUTUZUMAB
     Dosage: CYCLE 2 DAY 1 (TOTAL VOLUME 250 ML) INFUSION RATE :100UNITS MG/HR.
     Route: 065
     Dates: start: 20161027, end: 20161027
  26. ZANUBRUTINIB [Suspect]
     Active Substance: ZANUBRUTINIB
     Indication: MARGINAL ZONE LYMPHOMA
     Dosage: CYCLE 1, NUMBER OF CAPSULES 4?LAST DOSE PRIOR TO PULOMARY EDEMA ON 30/SEP/2016
     Route: 048
     Dates: start: 20160928, end: 20161026
  27. ZANUBRUTINIB [Suspect]
     Active Substance: ZANUBRUTINIB
     Dosage: CYCLE 7 NUMBER OF CAPSULES 4
     Route: 048
     Dates: start: 20170315, end: 20170411
  28. ZANUBRUTINIB [Suspect]
     Active Substance: ZANUBRUTINIB
     Dosage: CYCLE 8 NUMBER OF CAPSULES 4
     Route: 048
     Dates: start: 20170412, end: 20170510
  29. ZANUBRUTINIB [Suspect]
     Active Substance: ZANUBRUTINIB
     Dosage: CYCLE 17 NUMBER OF CAPSULES 2
     Route: 048
     Dates: start: 20180314, end: 20180508
  30. DEXAMETHASONE. [Concomitant]
     Active Substance: DEXAMETHASONE
     Route: 042
     Dates: start: 20170216, end: 20170216
  31. LORATADINE. [Concomitant]
     Active Substance: LORATADINE
     Route: 048
     Dates: start: 20161013, end: 20161013
  32. CRESTOR [Concomitant]
     Active Substance: ROSUVASTATIN CALCIUM
     Route: 048
     Dates: start: 1995
  33. PREDNISONE. [Concomitant]
     Active Substance: PREDNISONE
     Route: 048
     Dates: start: 20160921, end: 20160923
  34. CEFTRIAXONE. [Concomitant]
     Active Substance: CEFTRIAXONE
     Indication: CHRONIC OBSTRUCTIVE PULMONARY DISEASE
     Route: 042
     Dates: start: 20180814, end: 20180815
  35. INFLUENZA VACCINE [Concomitant]
     Active Substance: INFLUENZA VIRUS VACCINE
     Indication: PROPHYLAXIS
     Route: 030
     Dates: start: 20180502, end: 20180502
  36. FUROSEMIDE. [Concomitant]
     Active Substance: FUROSEMIDE
     Route: 042
     Dates: start: 20161001, end: 20161001
  37. ZANUBRUTINIB [Suspect]
     Active Substance: ZANUBRUTINIB
     Dosage: CYCLE 2 NUMBER OF CAPSULES 4
     Route: 048
     Dates: start: 20161027, end: 20161123
  38. ZANUBRUTINIB [Suspect]
     Active Substance: ZANUBRUTINIB
     Dosage: CYCLE 11 NUMBER OF CAPSULES 4
     Route: 048
     Dates: start: 20170705, end: 20170802
  39. ZANUBRUTINIB [Suspect]
     Active Substance: ZANUBRUTINIB
     Dosage: CYCLE 13 NUMBER OF CAPSULES 4?CYCLE 14
     Route: 048
     Dates: start: 20170928, end: 20171122
  40. ZANUBRUTINIB [Suspect]
     Active Substance: ZANUBRUTINIB
     Dosage: CYCLE 15 NUMBER OF CAPSULES 2
     Route: 048
     Dates: start: 20180112, end: 20180112
  41. ZANUBRUTINIB [Suspect]
     Active Substance: ZANUBRUTINIB
     Dosage: CYCLE 16 NUMBER OF CAPSULES 4
     Route: 048
     Dates: start: 20180123, end: 20180313
  42. DEXAMETHASONE. [Concomitant]
     Active Substance: DEXAMETHASONE
     Route: 042
     Dates: start: 20170119, end: 20170119
  43. LORATADINE. [Concomitant]
     Active Substance: LORATADINE
     Route: 048
     Dates: start: 20160930, end: 20160930
  44. LORATADINE. [Concomitant]
     Active Substance: LORATADINE
     Route: 048
     Dates: start: 20161027, end: 20161027
  45. PARACETAMOL [Concomitant]
     Active Substance: ACETAMINOPHEN
     Route: 048
     Dates: start: 20160930, end: 20160930
  46. PARACETAMOL [Concomitant]
     Active Substance: ACETAMINOPHEN
     Route: 048
     Dates: start: 20170119, end: 20170119
  47. PERINDOPRIL [Concomitant]
     Active Substance: PERINDOPRIL
     Route: 048
     Dates: start: 1995, end: 20170914
  48. VENTOLIN [Concomitant]
     Active Substance: ALBUTEROL SULFATE
     Dosage: PUFF 2
     Route: 065
     Dates: start: 2002
  49. FUROSEMIDE. [Concomitant]
     Active Substance: FUROSEMIDE
     Route: 048
     Dates: start: 20161001, end: 20161002
  50. OBINUTUZUMAB. [Suspect]
     Active Substance: OBINUTUZUMAB
     Dosage: CYCLE 1 DAY 3, TOTAL VOLUME: 250 UNITS MILILITERS. RATE OF INFUSION 50 UNITS MG/HR.
     Route: 065
     Dates: start: 20160930, end: 20160930
  51. ZANUBRUTINIB [Suspect]
     Active Substance: ZANUBRUTINIB
     Dosage: CYCLE 9 NUMBER OF CAPSULES 4
     Route: 048
     Dates: start: 20170511, end: 20170606
  52. ZANUBRUTINIB [Suspect]
     Active Substance: ZANUBRUTINIB
     Dosage: CYCLE 20 NUMBER OF CAPSULES 2
     Route: 048
     Dates: start: 20180829, end: 20180911
  53. ALLOPURINOL. [Concomitant]
     Active Substance: ALLOPURINOL
     Indication: PROPHYLAXIS
     Route: 048
     Dates: start: 20160911
  54. RESONIUM [Concomitant]
     Active Substance: SODIUM POLYSTYRENE SULFONATE
     Route: 048
     Dates: start: 20160929, end: 20160929
  55. LORATADINE. [Concomitant]
     Active Substance: LORATADINE
     Indication: PROPHYLAXIS
     Route: 060
     Dates: start: 20160929, end: 20160929
  56. LORATADINE. [Concomitant]
     Active Substance: LORATADINE
     Route: 048
     Dates: start: 20160216, end: 20160216
  57. PARACETAMOL [Concomitant]
     Active Substance: ACETAMINOPHEN
     Route: 048
     Dates: start: 20161006, end: 20161006
  58. PARACETAMOL [Concomitant]
     Active Substance: ACETAMINOPHEN
     Route: 048
     Dates: start: 20161124, end: 20161124
  59. CEFTRIAXONE. [Concomitant]
     Active Substance: CEFTRIAXONE
     Indication: PNEUMONIA
     Route: 042
     Dates: start: 20180512, end: 20180513
  60. INDOCID [INDOMETACIN] [Concomitant]
     Active Substance: INDOMETHACIN
     Indication: RENAL COLIC
     Route: 054
     Dates: start: 20180512, end: 20180512
  61. IRON POLYMALTOSE [Concomitant]
     Active Substance: IRON POLYMALTOSE
     Indication: IRON DEFICIENCY ANAEMIA
     Route: 065
     Dates: start: 20180817, end: 20180817
  62. OBINUTUZUMAB. [Suspect]
     Active Substance: OBINUTUZUMAB
     Dosage: CYCLE 6 DAY 1 (TOTAL VOLUME 250 ML) INFUSION RATE :100UNITS MG/HR.
     Route: 065
     Dates: start: 20170216, end: 20170216
  63. ZANUBRUTINIB [Suspect]
     Active Substance: ZANUBRUTINIB
     Dosage: CYCLE 6 NUMBER OF CAPSULES 4
     Route: 048
     Dates: start: 20170216, end: 20170314
  64. ZANUBRUTINIB [Suspect]
     Active Substance: ZANUBRUTINIB
     Dosage: CYCLE 10 NUMBER OF CAPSULES 4
     Route: 048
     Dates: start: 20170607, end: 20170704
  65. ZANUBRUTINIB [Suspect]
     Active Substance: ZANUBRUTINIB
     Dosage: CYCLE 13 NUMBER OF CAPSULES 4
     Route: 048
     Dates: start: 20170831, end: 20170927
  66. ZANUBRUTINIB [Suspect]
     Active Substance: ZANUBRUTINIB
     Dosage: CYCLE 20 NUMBER OF CAPSULES 2
     Route: 048
     Dates: start: 20181008, end: 20181023
  67. DEXAMETHASONE. [Concomitant]
     Active Substance: DEXAMETHASONE
     Route: 042
     Dates: start: 20161006, end: 20161006
  68. DEXAMETHASONE. [Concomitant]
     Active Substance: DEXAMETHASONE
     Route: 042
     Dates: start: 20161222, end: 20161222
  69. PARACETAMOL [Concomitant]
     Active Substance: ACETAMINOPHEN
     Indication: PROPHYLAXIS
     Route: 048
     Dates: start: 20160929, end: 20160929
  70. HYDROCORTISONE. [Concomitant]
     Active Substance: HYDROCORTISONE
     Dosage: EVERY DAY
     Route: 042
     Dates: start: 20160920, end: 20160920
  71. DILTIAZEM. [Concomitant]
     Active Substance: DILTIAZEM
     Indication: ATRIAL FIBRILLATION
     Route: 048
     Dates: start: 20171114
  72. CEFTRIAXONE. [Concomitant]
     Active Substance: CEFTRIAXONE
     Indication: RENAL COLIC
     Route: 042
     Dates: start: 20171231, end: 20171231
  73. AUGMENTIN [Concomitant]
     Active Substance: AMOXICILLIN\CLAVULANATE POTASSIUM
     Route: 048
     Dates: start: 20180103, end: 20180108
  74. AUGMENTIN [Concomitant]
     Active Substance: AMOXICILLIN\CLAVULANATE POTASSIUM
     Indication: IRON DEFICIENCY ANAEMIA
     Route: 048
  75. OBINUTUZUMAB. [Suspect]
     Active Substance: OBINUTUZUMAB
     Dosage: CYCLE 3 DAY 1 (TOTAL VOLUME 250 ML) INFUSION RATE :100UNITS MG/HR.
     Route: 065
     Dates: start: 20161124, end: 20161124
  76. ZANUBRUTINIB [Suspect]
     Active Substance: ZANUBRUTINIB
     Dosage: CYCLE 5 NUMBER OF CAPSULES 4
     Route: 048
     Dates: start: 20170119, end: 20170215
  77. ZANUBRUTINIB [Suspect]
     Active Substance: ZANUBRUTINIB
     Dosage: CYCLE 12 NUMBER OF CAPSULES 4
     Route: 048
     Dates: start: 20170803, end: 20170830
  78. ZANUBRUTINIB [Suspect]
     Active Substance: ZANUBRUTINIB
     Dosage: CYCLE 19 NUMBER OF CAPSULES 2?ALSO RECEIVED ON 10/AUG/2018
     Route: 048
     Dates: start: 20180704, end: 20180828
  79. ZANUBRUTINIB [Suspect]
     Active Substance: ZANUBRUTINIB
     Dosage: CYCLE 21 NUMBER OF CAPSULES 2
     Route: 048
     Dates: start: 20181024, end: 20181029
  80. DEXAMETHASONE. [Concomitant]
     Active Substance: DEXAMETHASONE
     Route: 042
     Dates: start: 20161124, end: 20161124
  81. LORATADINE. [Concomitant]
     Active Substance: LORATADINE
     Route: 048
     Dates: start: 20161222, end: 20161222
  82. PARACETAMOL [Concomitant]
     Active Substance: ACETAMINOPHEN
     Route: 048
     Dates: start: 20161013, end: 20161013
  83. OBINUTUZUMAB. [Suspect]
     Active Substance: OBINUTUZUMAB
     Indication: MARGINAL ZONE LYMPHOMA
     Dosage: CYCLE 1 DAY 2 INFUSION RATE 25 UNITS/MG?LAST DOSE PRIOR TO PULOMARY EDEMA ON 29/SEP/2016
     Route: 065
     Dates: start: 20160929, end: 20160929
  84. ZANUBRUTINIB [Suspect]
     Active Substance: ZANUBRUTINIB
     Dosage: CYCLE 15 NUMBER OF CAPSULES 4
     Route: 048
     Dates: start: 20171123, end: 20180111
  85. ZANUBRUTINIB [Suspect]
     Active Substance: ZANUBRUTINIB
     Dosage: CYCLE 16 NUMBER OF CAPSULES 2
     Route: 048
     Dates: start: 20180122, end: 20180122
  86. ZANUBRUTINIB [Suspect]
     Active Substance: ZANUBRUTINIB
     Dosage: DRUG INTERRUPTED
     Route: 048
     Dates: start: 20181030
  87. BACTRIM DS [Concomitant]
     Active Substance: SULFAMETHOXAZOLE\TRIMETHOPRIM
     Indication: PROPHYLAXIS
     Route: 048
     Dates: start: 20160912
  88. LORATADINE. [Concomitant]
     Active Substance: LORATADINE
     Route: 048
     Dates: start: 20161124, end: 20161124
  89. LORATADINE. [Concomitant]
     Active Substance: LORATADINE
     Route: 048
     Dates: start: 20170119, end: 20170119
  90. PARACETAMOL [Concomitant]
     Active Substance: ACETAMINOPHEN
     Route: 048
     Dates: start: 20161222, end: 20161222
  91. PARACETAMOL [Concomitant]
     Active Substance: ACETAMINOPHEN
     Route: 048
     Dates: start: 20170216, end: 20170216
  92. PREDNISONE. [Concomitant]
     Active Substance: PREDNISONE
     Route: 048
     Dates: start: 20161207, end: 20161211

REACTIONS (7)
  - Pneumonia [Recovered/Resolved]
  - Pneumonia pneumococcal [Recovered/Resolved]
  - Nephrolithiasis [Unknown]
  - Pulmonary oedema [Recovered/Resolved]
  - Chronic obstructive pulmonary disease [Recovered/Resolved]
  - Dyspnoea [Recovered/Resolved]
  - Ureteral stent insertion [Recovered/Resolved]

NARRATIVE: CASE EVENT DATE: 20161001
